FAERS Safety Report 10042487 (Version 1)
Quarter: 2014Q1

REPORT INFORMATION
  Report Type: Spontaneous
  Country: ES (occurrence: ES)
  Receive Date: 20140327
  Receipt Date: 20140327
  Transmission Date: 20141002
  Serious: Yes (Other)
  Sender: FDA-Public Use
  Company Number: PHHY2014ES034402

PATIENT
  Sex: Female

DRUGS (3)
  1. TACROLIMUS [Suspect]
     Indication: TRANSPLANT
  2. AZATHIOPRINE [Suspect]
     Indication: TRANSPLANT
  3. CORTICOSTEROIDS [Suspect]

REACTIONS (7)
  - Renal failure [Unknown]
  - Hypertensive crisis [Unknown]
  - Breech presentation [Unknown]
  - Pulmonary oedema [Unknown]
  - Premature labour [Unknown]
  - Diarrhoea [Unknown]
  - Maternal exposure during pregnancy [Unknown]
